FAERS Safety Report 6279395-2 (Version None)
Quarter: 2009Q3

REPORT INFORMATION
  Report Type: 
  Country: None (occurrence: None)
  Receive Date: 20090721
  Receipt Date: 20090706
  Transmission Date: 20100115
  Serious: Yes (Hospitalization)
  Sender: FDA-Public Use
  Company Number: 2009002004

PATIENT
  Age: 71 Year
  Sex: Male

DRUGS (11)
  1. ERLOTINIB (ERLOTINIB) (TABLET)(ERLOTINIB) [Suspect]
     Indication: LUNG NEOPLASM MALIGNANT
     Dosage: (150 MG,Q21),ORAL
     Route: 048
  2. DOCETAXEL [Suspect]
     Dates: start: 20090602
  3. LONALGAL [Concomitant]
  4. ZURCAZOL [Concomitant]
  5. REMERON [Concomitant]
  6. DILTIAZEM HYDROCHLORIDE [Concomitant]
  7. DIOVAN HCT [Concomitant]
  8. SALOSPIR (ACETYLSALICYLIC ACID) [Concomitant]
  9. SPIRIVA [Concomitant]
  10. SERETIDE (SERETIDE) [Concomitant]
  11. LIPITOR [Concomitant]

REACTIONS (1)
  - HAEMOPTYSIS [None]
